FAERS Safety Report 24451634 (Version 2)
Quarter: 2024Q4

REPORT INFORMATION
  Report Type: Spontaneous
  Country: PL (occurrence: PL)
  Receive Date: 20241017
  Receipt Date: 20241025
  Transmission Date: 20250114
  Serious: Yes (Other)
  Sender: PFIZER
  Company Number: PL-AMGEN-POLSP2024194401

PATIENT
  Sex: Female

DRUGS (8)
  1. FILGRASTIM [Suspect]
     Active Substance: FILGRASTIM
     Indication: Pancytopenia
     Dosage: UNK
     Route: 065
     Dates: start: 2020
  2. CARFILZOMIB [Suspect]
     Active Substance: CARFILZOMIB
     Indication: Plasma cell myeloma
     Dosage: UNK, C1D8-9 (VIAL - LYOPHILIZED)
     Route: 065
     Dates: start: 20240123
  3. CARFILZOMIB [Suspect]
     Active Substance: CARFILZOMIB
     Dosage: UNK, CD1-2 (REDUCED DOSES), C1D8-9 (VIAL - LYOPHILIZED)
     Route: 065
     Dates: start: 20240123
  4. LENALIDOMIDE [Concomitant]
     Active Substance: LENALIDOMIDE
     Indication: Plasma cell myeloma
     Dosage: UNK
     Dates: start: 20240123
  5. ZOLEDRONIC ACID [Concomitant]
     Active Substance: ZOLEDRONIC ACID
     Dosage: UNK
     Dates: start: 202306
  6. DARATUMUMAB [Concomitant]
     Active Substance: DARATUMUMAB
     Indication: Plasma cell myeloma
     Dosage: UNK, Q4WK
     Dates: start: 2020
  7. DEXAMETHASONE [Concomitant]
     Active Substance: DEXAMETHASONE
     Indication: Plasma cell myeloma
     Dosage: UNK
     Dates: start: 2020
  8. BORTEZOMIB [Concomitant]
     Active Substance: BORTEZOMIB
     Indication: Plasma cell myeloma
     Dosage: UNK
     Dates: start: 2020

REACTIONS (12)
  - Rib fracture [Unknown]
  - Alpha haemolytic streptococcal infection [Recovering/Resolving]
  - Plasma cell myeloma [Unknown]
  - Pathological fracture [Unknown]
  - Spinal fracture [Unknown]
  - Vascular device infection [Unknown]
  - Neuropathy peripheral [Recovering/Resolving]
  - Heart rate irregular [Unknown]
  - Blood pressure increased [Unknown]
  - Diarrhoea infectious [Recovering/Resolving]
  - Candida infection [Unknown]
  - Off label use [Unknown]

NARRATIVE: CASE EVENT DATE: 20200101
